FAERS Safety Report 13980741 (Version 1)
Quarter: 2017Q3

REPORT INFORMATION
  Report Type: Spontaneous
  Country: CA (occurrence: CA)
  Receive Date: 20170918
  Receipt Date: 20170918
  Transmission Date: 20171128
  Serious: Yes (Other)
  Sender: FDA-Public Use
  Company Number: CA-ABBVIE-17K-028-2022260-00

PATIENT
  Age: 56 Year
  Sex: Male

DRUGS (5)
  1. IMODIUM [Suspect]
     Active Substance: LOPERAMIDE HYDROCHLORIDE
     Indication: POST PROCEDURAL DIARRHOEA
     Route: 048
  2. OLESTYR [Concomitant]
     Indication: PRODUCT USED FOR UNKNOWN INDICATION
  3. HUMIRA [Suspect]
     Active Substance: ADALIMUMAB
     Indication: CROHN^S DISEASE
     Route: 058
     Dates: start: 2016, end: 20160831
  4. PREDNISONE. [Concomitant]
     Active Substance: PREDNISONE
     Indication: PRODUCT USED FOR UNKNOWN INDICATION
     Dates: start: 201601, end: 201606
  5. METHOTREXATE. [Suspect]
     Active Substance: METHOTREXATE
     Indication: PRODUCT USED FOR UNKNOWN INDICATION
     Dosage: UNIT DOSE: 5 PILLS
     Route: 048
     Dates: start: 201601, end: 201604

REACTIONS (7)
  - Drug ineffective [Unknown]
  - Abdominal distension [Unknown]
  - Abdominal pain [Unknown]
  - Post procedural diarrhoea [Not Recovered/Not Resolved]
  - Abdominal discomfort [Not Recovered/Not Resolved]
  - Small intestinal obstruction [Unknown]
  - Enterocolonic fistula [Unknown]

NARRATIVE: CASE EVENT DATE: 201608
